FAERS Safety Report 15752382 (Version 1)
Quarter: 2018Q4

REPORT INFORMATION
  Report Type: Spontaneous
  Country: JP (occurrence: JP)
  Receive Date: 20181221
  Receipt Date: 20181221
  Transmission Date: 20190205
  Serious: Yes (Other)
  Sender: FDA-Public Use
  Company Number: JP-DSJP-DSJ-2018-148174

PATIENT

DRUGS (21)
  1. LIXIANA TABLETS [Suspect]
     Active Substance: EDOXABAN TOSYLATE
     Indication: PRODUCT USED FOR UNKNOWN INDICATION
     Dosage: 30 MG, QD
     Route: 048
     Dates: start: 20170428, end: 20181110
  2. MAGMITT [Concomitant]
     Active Substance: MAGNESIUM OXIDE
     Dosage: 500 MG, QD
     Route: 065
     Dates: start: 20181110, end: 20181110
  3. AZUNOL                             /00620101/ [Concomitant]
     Active Substance: GUAIAZULENE
     Dosage: UNK, SEVERAL TIMES/DAY
     Route: 050
     Dates: start: 20181004
  4. LEVOFLOXACIN. [Concomitant]
     Active Substance: LEVOFLOXACIN
     Dosage: 500 MG, QD
     Route: 065
     Dates: start: 20181105, end: 20181105
  5. MAGMITT [Concomitant]
     Active Substance: MAGNESIUM OXIDE
     Dosage: 500 MG, BID
     Route: 065
     Dates: start: 20181111, end: 20181116
  6. FEBURIC [Concomitant]
     Active Substance: FEBUXOSTAT
     Dosage: 10 MG, QD
     Route: 065
     Dates: end: 20181116
  7. SODIUM PICOSULFATE [Concomitant]
     Active Substance: SODIUM PICOSULFATE
     Dosage: 5 MG, AS NEEDED
     Route: 065
     Dates: start: 20181017
  8. BANAN [Concomitant]
     Active Substance: CEFPODOXIME PROXETIL
     Dosage: 100 MG, BID
     Route: 065
     Dates: start: 20181031, end: 20181105
  9. CALONAL [Concomitant]
     Active Substance: ACETAMINOPHEN
     Dosage: 300 MG, AS NEEDED
     Route: 065
     Dates: start: 20181031
  10. SODIUM PICOSULFATE JG [Concomitant]
     Dosage: 10 ML, AS NEEDED
     Route: 065
     Dates: start: 20181112
  11. LIXIANA TABLETS [Suspect]
     Active Substance: EDOXABAN TOSYLATE
     Dosage: 30 MG, QD
     Route: 048
     Dates: start: 20181126
  12. JU-KAMA [Concomitant]
     Active Substance: MAGNESIUM OXIDE
     Dosage: 1 G, TID
     Route: 065
     Dates: end: 20181116
  13. KREMEZIN [Concomitant]
     Active Substance: ACTIVATED CHARCOAL
     Dosage: 2 G, BID
     Route: 065
     Dates: start: 20181110, end: 20181110
  14. HALFDIGOXIN KY [Concomitant]
     Dosage: 0.0625 MG, QD
     Route: 065
  15. VASOLAN                            /00014302/ [Concomitant]
     Active Substance: VERAPAMIL HYDROCHLORIDE
     Dosage: 40 MG, TID
     Route: 065
  16. GLYCERIN                           /00200601/ [Concomitant]
     Active Substance: GLYCERIN
     Dosage: 10 ML, SEVERAL TIMES/DAY
     Route: 050
     Dates: start: 20181114
  17. ENEVO [Concomitant]
     Dosage: 250 ML, BID
     Route: 065
  18. LEVOFLOXACIN. [Concomitant]
     Active Substance: LEVOFLOXACIN
     Dosage: 250 MG, QD
     Route: 065
     Dates: start: 20181107, end: 20181107
  19. FUROSEMIDE TEVA [Concomitant]
     Active Substance: FUROSEMIDE
     Dosage: 20 MG, QD
     Route: 065
     Dates: end: 20181116
  20. ROZEREM [Concomitant]
     Active Substance: RAMELTEON
     Dosage: 8 MG, QD
     Route: 065
  21. KREMEZIN [Concomitant]
     Active Substance: ACTIVATED CHARCOAL
     Dosage: 2 G, TID
     Route: 065
     Dates: start: 20181111, end: 20181123

REACTIONS (2)
  - Renal impairment [Recovered/Resolved]
  - Urinary tract infection [Recovering/Resolving]

NARRATIVE: CASE EVENT DATE: 20181015
